FAERS Safety Report 18275982 (Version 18)
Quarter: 2023Q2

REPORT INFORMATION
  Report Type: Report from Study
  Country: DE (occurrence: None)
  Receive Date: 20200916
  Receipt Date: 20230626
  Transmission Date: 20230721
  Serious: Yes (Death, Hospitalization)
  Sender: FDA-Public Use
  Company Number: DE-ROCHE-2675165

PATIENT
  Age: 63 Year
  Sex: Female
  Weight: 71 kg

DRUGS (7)
  1. ATEZOLIZUMAB [Suspect]
     Active Substance: ATEZOLIZUMAB
     Indication: Triple negative breast cancer
     Dosage: FOR 10 DOSES.?MOST RECENT DOSE (840 MG) RECEIVED PRIOR TO WORSENING OF GENERAL PHYSICAL CONDITION (0
     Route: 041
     Dates: start: 20200416
  2. PACLITAXEL [Suspect]
     Active Substance: PACLITAXEL
     Indication: Triple negative breast cancer
     Dosage: MOST RECENT DOSE (141.6 MG) RECEIVED PRIOR TO ONSET OF WORSENING OF GENERAL PHYSICAL CONDITION AND A
     Route: 042
     Dates: start: 20200416
  3. CYCLOPHOSPHAMIDE [Suspect]
     Active Substance: CYCLOPHOSPHAMIDE
     Indication: Triple negative breast cancer
     Dosage: FOR 4 DOSES. MOST RECENT DOSE (796.5 MG) RECEIVED ON PRIOR TO WORSENING OF GENERAL PHYSICAL CONDITIO
     Route: 042
     Dates: start: 20200708
  4. EPIRUBICIN [Suspect]
     Active Substance: EPIRUBICIN
     Indication: Triple negative breast cancer
     Dosage: FOR 4 DOSES. MOST RECENT DOSE (119.48 MG) RECEIVED ON PRIOR TO ONSET OF WORSENING OF GENERAL PHYSICA
     Route: 042
     Dates: start: 20200708
  5. PEGFILGRASTIM [Suspect]
     Active Substance: PEGFILGRASTIM
     Indication: Triple negative breast cancer
     Dosage: ON 23/JUL/2020 AND ON 13/AUG/2020 SHE RECEIVED SUBSEQUENT DOSES OF PEGFILGRASTIM CYCLE 4 VISIT 1 AT
     Route: 058
     Dates: start: 20200709, end: 20200709
  6. PEGFILGRASTIM [Suspect]
     Active Substance: PEGFILGRASTIM
     Dosage: CYCLE 4 VISIT 2 AT 15:30
     Route: 058
     Dates: start: 20200723, end: 20200723
  7. PEGFILGRASTIM [Suspect]
     Active Substance: PEGFILGRASTIM
     Dosage: CYCLE 5 VISIT 1 AT 18:15
     Route: 058
     Dates: start: 20200813, end: 20200813

REACTIONS (3)
  - General physical health deterioration [Fatal]
  - Hypothyroidism [Recovered/Resolved]
  - Adrenal insufficiency [Recovered/Resolved]

NARRATIVE: CASE EVENT DATE: 20200805
